FAERS Safety Report 4317369-9 (Version None)
Quarter: 2004Q1

REPORT INFORMATION
  Report Type: 
  Country: None (occurrence: None)
  Receive Date: 20040316
  Receipt Date: 20040316
  Transmission Date: 20041129
  Serious: Yes (Other)
  Sender: FDA-Public Use
  Company Number: None

PATIENT
  Sex: Female

DRUGS (1)
  1. MIRTAZEPINE SOL TAB 15 MG (GENERIC) [Suspect]
     Indication: MAJOR DEPRESSION
     Dosage: 15-30 MG PO QHS
     Route: 048
     Dates: start: 20040201

REACTIONS (5)
  - DRUG EFFECT DECREASED [None]
  - DYSGEUSIA [None]
  - FATIGUE [None]
  - FEELING ABNORMAL [None]
  - PHARMACEUTICAL PRODUCT COMPLAINT [None]
